FAERS Safety Report 4332842-5 (Version None)
Quarter: 2004Q1

REPORT INFORMATION
  Report Type: 
  Country: None (occurrence: None)
  Receive Date: 20040330
  Receipt Date: 20040322
  Transmission Date: 20041129
  Serious: Yes (Hospitalization)
  Sender: FDA-Public Use
  Company Number: 200412856BWH

PATIENT
  Age: 60 Year
  Sex: Female
  Weight: 68.0396 kg

DRUGS (5)
  1. AVELOX [Suspect]
     Indication: BRONCHITIS
     Dosage: 400 MG, QD, ORAL
     Route: 048
     Dates: start: 20031204, end: 20031214
  2. AMARYL [Concomitant]
  3. ECOTRIN [Concomitant]
  4. LOPRESSOR [Concomitant]
  5. ZOCOR [Concomitant]

REACTIONS (2)
  - SKIN NECROSIS [None]
  - VASCULITIS [None]
